FAERS Safety Report 9102807 (Version 1)
Quarter: 2013Q1

REPORT INFORMATION
  Report Type: Spontaneous
  Country: US (occurrence: US)
  Receive Date: 20130219
  Receipt Date: 20130219
  Transmission Date: 20140127
  Serious: Yes (Other)
  Sender: FDA-Public Use
  Company Number: US-SANOFI-AVENTIS-2013SA013679

PATIENT
  Age: 58 Year
  Sex: Female
  Weight: 58.05 kg

DRUGS (1)
  1. PLAVIX [Suspect]
     Indication: ANEURYSM
     Route: 048
     Dates: start: 2003

REACTIONS (3)
  - Transient ischaemic attack [Unknown]
  - Weight decreased [Unknown]
  - Malaise [Unknown]
